FAERS Safety Report 17099944 (Version 1)
Quarter: 2019Q4

REPORT INFORMATION
  Report Type: Spontaneous
  Country: US (occurrence: US)
  Receive Date: 20191202
  Receipt Date: 20191202
  Transmission Date: 20200122
  Serious: No
  Sender: FDA-Public Use
  Company Number: US-BAYER-2019-215186

PATIENT
  Sex: Male

DRUGS (1)
  1. CLARITINE 10 MG [Suspect]
     Active Substance: LORATADINE
     Indication: ANTIALLERGIC THERAPY
     Dosage: UNK
     Dates: start: 2017

REACTIONS (3)
  - Somnolence [None]
  - Therapeutic product effect decreased [None]
  - Impaired driving ability [None]
